FAERS Safety Report 20336203 (Version 1)
Quarter: 2022Q1

REPORT INFORMATION
  Report Type: Report from Study
  Country: FR (occurrence: FR)
  Receive Date: 20220114
  Receipt Date: 20220114
  Transmission Date: 20220423
  Serious: Yes (Other)
  Sender: FDA-Public Use
  Company Number: FR-PFIZER INC-202200062314

PATIENT
  Age: 68 Year
  Sex: Male

DRUGS (3)
  1. AZITHROMYCIN [Interacting]
     Active Substance: AZITHROMYCIN
     Indication: COVID-19 treatment
     Dosage: UNK
  2. LOPINAVIR\RITONAVIR [Interacting]
     Active Substance: LOPINAVIR\RITONAVIR
     Indication: COVID-19 treatment
     Dosage: UNK
  3. TACROLIMUS [Interacting]
     Active Substance: TACROLIMUS
     Dosage: UNK

REACTIONS (4)
  - Drug interaction [Unknown]
  - Acute kidney injury [Unknown]
  - Drug level increased [Recovered/Resolved]
  - Confusional state [Unknown]
